FAERS Safety Report 9205805 (Version 1)
Quarter: 2013Q2

REPORT INFORMATION
  Report Type: Spontaneous
  Country: US (occurrence: US)
  Receive Date: 20130403
  Receipt Date: 20130403
  Transmission Date: 20140414
  Serious: Yes (Hospitalization, Disabling)
  Sender: FDA-Public Use
  Company Number: US-009507513-1303USA013776

PATIENT
  Age: 94 Year
  Sex: Male

DRUGS (1)
  1. INVANZ [Suspect]
     Indication: URINARY TRACT INFECTION
     Dosage: 1 G, UNK
     Route: 042
     Dates: start: 20130310, end: 201303

REACTIONS (3)
  - Fall [Recovering/Resolving]
  - Mental status changes [Recovering/Resolving]
  - Pneumonia aspiration [Recovering/Resolving]
